FAERS Safety Report 8749355 (Version 2)
Quarter: 2012Q4

REPORT INFORMATION
  Report Type: Report from Study
  Country: US (occurrence: None)
  Receive Date: 20120806
  Receipt Date: 20121121
  Transmission Date: 20130627
  Serious: Yes (Death)
  Sender: FDA-Public Use
  Company Number: DSA_58745_2012

PATIENT
  Age: 32 Year
  Sex: Male

DRUGS (3)
  1. BUPROPION HYDROCHLORIDE [Suspect]
     Indication: SMOKING CESSATION THERAPY
     Dosage: 150 MG BID ORAL
     Route: 048
     Dates: start: 20120627
  2. CLARITIN [Concomitant]
  3. MULTI-VITAMIN [Concomitant]

REACTIONS (3)
  - Abdominal pain lower [None]
  - Treatment noncompliance [None]
  - Accidental overdose [None]
